FAERS Safety Report 8223711-9 (Version None)
Quarter: 2012Q1

REPORT INFORMATION
  Report Type: 
  Country: None (occurrence: None)
  Receive Date: 20120316
  Receipt Date: 20120307
  Transmission Date: 20120608
  Serious: Yes (Other)
  Sender: FDA-Public Use
  Company Number: TCI2012A00571

PATIENT
  Age: 71 Year
  Sex: Male

DRUGS (5)
  1. OLMESARTAN MEDOXOMIL [Concomitant]
  2. ACTOS [Suspect]
     Indication: TYPE 2 DIABETES MELLITUS
     Dosage: 30 MG (30 MG,1 IN 1 D) PER ORAL
     Route: 048
     Dates: start: 20120118, end: 20120126
  3. ASPIRIN [Concomitant]
  4. AMARYL [Concomitant]
  5. TRICHLORMETHIAZIDE [Concomitant]

REACTIONS (13)
  - LIVER DISORDER [None]
  - ABDOMINAL PAIN [None]
  - ALANINE AMINOTRANSFERASE INCREASED [None]
  - ASPARTATE AMINOTRANSFERASE INCREASED [None]
  - GAMMA-GLUTAMYLTRANSFERASE INCREASED [None]
  - JAUNDICE [None]
  - DIARRHOEA [None]
  - DECREASED APPETITE [None]
  - PANCREATIC CARCINOMA [None]
  - HEPATIC FUNCTION ABNORMAL [None]
  - DRY THROAT [None]
  - BLOOD ALKALINE PHOSPHATASE INCREASED [None]
  - MALAISE [None]
